FAERS Safety Report 25785643 (Version 3)
Quarter: 2025Q4

REPORT INFORMATION
  Report Type: Report from Study
  Country: US (occurrence: US)
  Receive Date: 20250910
  Receipt Date: 20251107
  Transmission Date: 20260118
  Serious: Yes (Hospitalization, Other)
  Sender: ABBVIE
  Company Number: US-ABBVIE-6203328

PATIENT
  Age: 49 Year
  Sex: Female

DRUGS (3)
  1. SKYRIZI [Suspect]
     Active Substance: RISANKIZUMAB-RZAA
     Indication: Psoriasis
     Route: 058
     Dates: start: 20241201
  2. SKYRIZI [Suspect]
     Active Substance: RISANKIZUMAB-RZAA
     Dosage: LAST ADMIN DATE: 2024
     Route: 058
     Dates: start: 20241118
  3. ZEPBOUND [Suspect]
     Active Substance: TIRZEPATIDE
     Indication: Weight increased
     Dosage: STOP DATE TEXT: UNKNOWN
     Route: 065
     Dates: start: 202412

REACTIONS (13)
  - Pancreatitis [Unknown]
  - Sinusitis [Unknown]
  - Hepatic enzyme increased [Unknown]
  - Cholelithiasis [Recovered/Resolved]
  - Bile duct stone [Recovered/Resolved]
  - Bile duct stenosis [Unknown]
  - Abdominal pain [Unknown]
  - Lipase abnormal [Unknown]
  - Increased upper airway secretion [Not Recovered/Not Resolved]
  - Pain [Unknown]
  - Diarrhoea [Unknown]
  - Weight increased [Unknown]
  - Hepatic steatosis [Unknown]

NARRATIVE: CASE EVENT DATE: 20241201
